FAERS Safety Report 5616731-1 (Version None)
Quarter: 2008Q1

REPORT INFORMATION
  Report Type: 
  Country: None (occurrence: None)
  Receive Date: 20080204
  Receipt Date: 20080121
  Transmission Date: 20080703
  Serious: Yes (Death)
  Sender: FDA-Public Use
  Company Number: 2008000140

PATIENT
  Age: 49 Year
  Sex: Male

DRUGS (7)
  1. ERLOTINIB (TABLET) [Suspect]
     Indication: PANCREATIC CARCINOMA
     Dosage: 150 MG, (QD); ORAL
     Route: 048
     Dates: start: 20080109
  2. CAPECITABINE (INJECTION FOR INFUSION) [Suspect]
     Indication: PANCREATIC CARCINOMA
     Dosage: 1000 MG/M2 (QW); INTRAVENOUS
     Route: 042
     Dates: start: 20070411
  3. PREDNISONE [Concomitant]
  4. PANTOPRAZOLE SODIUM [Concomitant]
  5. TORSEMIDE [Concomitant]
  6. SPIRONOLACTONE [Concomitant]
  7. MITAMIZOLE SODIUM [Concomitant]

REACTIONS (3)
  - CARDIAC DISORDER [None]
  - PULMONARY EMBOLISM [None]
  - SUDDEN DEATH [None]
